FAERS Safety Report 4978375-4 (Version None)
Quarter: 2006Q2

REPORT INFORMATION
  Report Type: 
  Country: None (occurrence: None)
  Receive Date: 20060414
  Receipt Date: 20060328
  Transmission Date: 20061013
  Serious: Yes (Hospitalization)
  Sender: FDA-Public Use
  Company Number: 223807

PATIENT
  Age: 73 Year
  Sex: Female
  Weight: 44 kg

DRUGS (4)
  1. AVASTIN [Suspect]
     Indication: COLORECTAL CANCER METASTATIC
     Dosage: 215 MG, Q2W, INTRAVENOUS
     Route: 042
     Dates: start: 20060307
  2. LEUCOVORIN CALCIUM [Suspect]
     Indication: COLORECTAL CANCER METASTATIC
     Dosage: 250 MG, 4/MONTH, INTRAVENOUS
     Route: 042
     Dates: start: 20060307
  3. OXALIPLATIN (OXALIPLATIN) [Suspect]
     Indication: COLORECTAL CANCER METASTATIC
     Dosage: 108 MG, Q2W, INTRAVENOUS
     Route: 042
     Dates: start: 20060307
  4. FLUOROURACIL [Suspect]
     Indication: COLORECTAL CANCER METASTATIC
     Dosage: 512 MG, 4/MONTH, INTRAVENOUS
     Route: 042
     Dates: start: 20060307

REACTIONS (4)
  - ANOREXIA [None]
  - DEHYDRATION [None]
  - DIZZINESS [None]
  - VOMITING [None]
